FAERS Safety Report 9335198 (Version 1)
Quarter: 2013Q2

REPORT INFORMATION
  Report Type: Spontaneous
  Country: US (occurrence: US)
  Receive Date: 20130606
  Receipt Date: 20130606
  Transmission Date: 20140414
  Serious: Yes (Other)
  Sender: FDA-Public Use
  Company Number: US-RB-036432-12

PATIENT
  Age: 59 Year
  Sex: Male

DRUGS (2)
  1. SUBOXONE FILM [Suspect]
     Indication: PAIN
     Dosage: SUBOXONE FILM
     Route: 048
     Dates: start: 201012, end: 201301
  2. SUBOXONE FILM [Suspect]
     Indication: PAIN
     Dosage: SUBOXONE FILM
     Route: 048
     Dates: start: 201012, end: 201301

REACTIONS (3)
  - Incorrect route of drug administration [Recovered/Resolved]
  - Hand fracture [Recovered/Resolved]
  - Impaired healing [Recovered/Resolved]
